FAERS Safety Report 7392224-9 (Version None)
Quarter: 2011Q2

REPORT INFORMATION
  Report Type: 
  Country: None (occurrence: None)
  Receive Date: 20110404
  Receipt Date: 20110330
  Transmission Date: 20111010
  Serious: Yes (Other)
  Sender: FDA-Public Use
  Company Number: US-CEPHALON-2011001528

PATIENT

DRUGS (2)
  1. TREANDA [Suspect]
     Route: 042
  2. RITUXAN [Concomitant]

REACTIONS (1)
  - SKIN REACTION [None]
